FAERS Safety Report 9005735 (Version 1)
Quarter: 2013Q1

REPORT INFORMATION
  Report Type: Spontaneous
  Country: US (occurrence: US)
  Receive Date: 20130109
  Receipt Date: 20130109
  Transmission Date: 20140127
  Serious: No
  Sender: FDA-Public Use
  Company Number: US-ABBOTT-12P-163-0902495-00

PATIENT
  Sex: Female

DRUGS (2)
  1. VICODIN [Suspect]
     Indication: HEADACHE
     Route: 048
  2. ESTROPIPATE [Suspect]
     Indication: OESTROGEN REPLACEMENT THERAPY
     Route: 048
     Dates: start: 201111

REACTIONS (2)
  - Palpitations [Recovered/Resolved]
  - Drug ineffective [Unknown]
